FAERS Safety Report 20054788 (Version 1)
Quarter: 2021Q4

REPORT INFORMATION
  Report Type: Spontaneous
  Country: DE (occurrence: None)
  Receive Date: 20211110
  Receipt Date: 20211110
  Transmission Date: 20220303
  Serious: Yes (Other)
  Sender: FDA-Public Use
  Company Number: 2021A795881

PATIENT
  Sex: Female

DRUGS (6)
  1. TAMOXIFEN [Suspect]
     Active Substance: TAMOXIFEN
     Indication: Bile duct cancer
     Route: 048
     Dates: start: 201102
  2. ZOLADEX [Suspect]
     Active Substance: GOSERELIN ACETATE
     Route: 058
     Dates: start: 201907
  3. FASLODEX [Suspect]
     Active Substance: FULVESTRANT
     Route: 030
     Dates: start: 202008
  4. OLAPARIB [Suspect]
     Active Substance: OLAPARIB
     Indication: Metastatic neoplasm
     Route: 048
     Dates: start: 202106
  5. PALBOCICLIB [Suspect]
     Active Substance: PALBOCICLIB
  6. LETROZOLE [Concomitant]
     Active Substance: LETROZOLE

REACTIONS (6)
  - Metastases to liver [Unknown]
  - Metastases to breast [Unknown]
  - Decreased appetite [Unknown]
  - Dizziness [Unknown]
  - Dysgeusia [Unknown]
  - Fatigue [Unknown]

NARRATIVE: CASE EVENT DATE: 20190301
